FAERS Safety Report 24884844 (Version 10)
Quarter: 2025Q4

REPORT INFORMATION
  Report Type: Spontaneous
  Country: US (occurrence: US)
  Receive Date: 20250124
  Receipt Date: 20251118
  Transmission Date: 20260118
  Serious: Yes (Hospitalization, Other)
  Sender: SANOFI AVENTIS
  Company Number: US-SA-2025SA021782

PATIENT
  Age: 58 Year
  Sex: Female

DRUGS (30)
  1. REZUROCK [Suspect]
     Active Substance: BELUMOSUDIL
     Indication: Bone marrow transplant
     Dosage: 200 MG, QD
     Route: 048
     Dates: start: 202412
  2. REZUROCK [Suspect]
     Active Substance: BELUMOSUDIL
     Indication: Chronic graft versus host disease
  3. ALDACTONE [Concomitant]
     Active Substance: SPIRONOLACTONE
     Dosage: UNK
     Route: 048
  4. ASPIRIN [Concomitant]
     Active Substance: ASPIRIN
     Dosage: UNK
     Route: 048
  5. BUMEX [Concomitant]
     Active Substance: BUMETANIDE
     Dosage: UNK
     Route: 048
  6. BUMEX [Concomitant]
     Active Substance: BUMETANIDE
  7. BUMEX [Concomitant]
     Active Substance: BUMETANIDE
  8. BUMEX [Concomitant]
     Active Substance: BUMETANIDE
  9. CARAFATE [Concomitant]
     Active Substance: SUCRALFATE
     Dosage: UNK
     Route: 048
  10. CARAFATE [Concomitant]
     Active Substance: SUCRALFATE
  11. CARAFATE [Concomitant]
     Active Substance: SUCRALFATE
  12. CARAFATE [Concomitant]
     Active Substance: SUCRALFATE
  13. JARDIANCE [Concomitant]
     Active Substance: EMPAGLIFLOZIN
     Dosage: UNK
     Route: 048
  14. METOPROLOL TARTRATE [Concomitant]
     Active Substance: METOPROLOL TARTRATE
     Dosage: UNK
     Route: 048
  15. PEPCID [Concomitant]
     Active Substance: FAMOTIDINE
     Dosage: UNK
     Route: 048
  16. ROXICODONE [Concomitant]
     Active Substance: OXYCODONE HYDROCHLORIDE
     Dosage: UNK
     Route: 048
  17. TRELEGY ELLIPTA [Concomitant]
     Active Substance: FLUTICASONE FUROATE\UMECLIDINIUM BROMIDE\VILANTEROL TRIFENATATE
     Dosage: UNK
     Route: 055
  18. XIIDRA [Concomitant]
     Active Substance: LIFITEGRAST
     Dosage: UNK
     Route: 047
  19. RIFAXIMIN [Concomitant]
     Active Substance: RIFAXIMIN
     Dosage: UNK
  20. K tab [Concomitant]
     Dosage: UNK
     Route: 048
  21. KETOROLAC TROMETHAMINE [Concomitant]
     Active Substance: KETOROLAC TROMETHAMINE
     Dosage: UNK
  22. CEFDINIR [Concomitant]
     Active Substance: CEFDINIR
     Dosage: UNK
  23. MIDODRINE [Concomitant]
     Active Substance: MIDODRINE
     Dosage: UNK
  24. PROTONIX [Concomitant]
     Active Substance: PANTOPRAZOLE SODIUM
     Dosage: UNK
  25. ACETAMINOPHEN\BUTALBITAL\CAFFEINE [Concomitant]
     Active Substance: ACETAMINOPHEN\BUTALBITAL\CAFFEINE
     Dosage: UNK
  26. ACETAMINOPHEN\BUTALBITAL\CAFFEINE [Concomitant]
     Active Substance: ACETAMINOPHEN\BUTALBITAL\CAFFEINE
  27. NYSTATIN [Concomitant]
     Active Substance: NYSTATIN
     Dosage: UNK
  28. QUINIDINE GLUCONATE [Concomitant]
     Active Substance: QUINIDINE GLUCONATE
     Dosage: UNK
  29. HYDROXYZINE [Concomitant]
     Active Substance: HYDROXYZINE HYDROCHLORIDE
     Dosage: UNK
  30. OMEGA-3-ACID ETHYL ESTER [Concomitant]
     Active Substance: OMEGA-3-ACID ETHYL ESTERS
     Dosage: UNK

REACTIONS (17)
  - Fluid retention [Recovering/Resolving]
  - Cardiac failure chronic [Recovering/Resolving]
  - Pneumonia [Recovering/Resolving]
  - Gait inability [Recovering/Resolving]
  - Asthenia [Recovering/Resolving]
  - Eye infection [Recovering/Resolving]
  - Candida infection [Recovering/Resolving]
  - Pneumonia viral [Recovered/Resolved]
  - Blister [Not Recovered/Not Resolved]
  - Chapped lips [Recovering/Resolving]
  - Back injury [Recovering/Resolving]
  - Weight decreased [Not Recovered/Not Resolved]
  - Oral candidiasis [Recovering/Resolving]
  - Respiratory tract infection [Recovering/Resolving]
  - Contusion [Unknown]
  - Sinus headache [Unknown]
  - Product use in unapproved indication [Unknown]

NARRATIVE: CASE EVENT DATE: 20240101
